FAERS Safety Report 22346530 (Version 1)
Quarter: 2023Q2

REPORT INFORMATION
  Report Type: Spontaneous
  Country: US (occurrence: US)
  Receive Date: 20230519
  Receipt Date: 20230519
  Transmission Date: 20230721
  Serious: Yes (Hospitalization, Other)
  Sender: FDA-Public Use
  Company Number: US-BRISTOL-MYERS SQUIBB COMPANY-2023-067779

PATIENT
  Age: 81 Year
  Sex: Male
  Weight: 65.77 kg

DRUGS (1)
  1. POMALYST [Suspect]
     Active Substance: POMALIDOMIDE
     Indication: Plasma cell myeloma
     Route: 048
     Dates: start: 20230110

REACTIONS (4)
  - Blood potassium abnormal [Recovered/Resolved]
  - Blood magnesium abnormal [Recovered/Resolved]
  - Plasma cell myeloma [Recovered/Resolved]
  - Bone disorder [Recovered/Resolved]
